FAERS Safety Report 19278372 (Version 1)
Quarter: 2021Q2

REPORT INFORMATION
  Report Type: Other
  Country: CN (occurrence: CN)
  Receive Date: 20210520
  Receipt Date: 20210520
  Transmission Date: 20210717
  Serious: Yes (Hospitalization, Other)
  Sender: FDA-Public Use
  Company Number: CN-ASTELLAS-2021US017960

PATIENT
  Age: 52 Year
  Sex: Male

DRUGS (2)
  1. BETMIGA [Suspect]
     Active Substance: MIRABEGRON
     Indication: HYPERTONIC BLADDER
     Route: 048
     Dates: start: 20210426, end: 20210503
  2. TAMSULOSIN [Concomitant]
     Active Substance: TAMSULOSIN
     Indication: PROSTATITIS
     Dosage: 0.2 MG, ONCE DAILY
     Route: 048
     Dates: start: 20210426, end: 20210503

REACTIONS (3)
  - Retinal haemorrhage [Unknown]
  - Blood pressure increased [Unknown]
  - Retinal vascular occlusion [Unknown]

NARRATIVE: CASE EVENT DATE: 20210503
